FAERS Safety Report 6356567-X (Version None)
Quarter: 2009Q3

REPORT INFORMATION
  Report Type: 
  Country: None (occurrence: None)
  Receive Date: 20090910
  Receipt Date: 20090910
  Transmission Date: 20100115
  Serious: No
  Sender: FDA-Public Use
  Company Number: None

PATIENT
  Age: 69 Year
  Sex: Female

DRUGS (2)
  1. MIDAZOLAM HCL [Suspect]
     Indication: BRONCHOSCOPY
     Dosage: 2MG EVRY 3-5 MINS IV BOLUS
     Route: 040
     Dates: start: 20090826, end: 20090826
  2. MIDAZOLAM HCL [Suspect]

REACTIONS (2)
  - ANAESTHETIC COMPLICATION [None]
  - DRUG INEFFECTIVE [None]
